FAERS Safety Report 12878465 (Version 2)
Quarter: 2016Q4

REPORT INFORMATION
  Report Type: Spontaneous
  Country: JP (occurrence: JP)
  Receive Date: 20161024
  Receipt Date: 20161221
  Transmission Date: 20170207
  Serious: Yes (Death, Hospitalization)
  Sender: FDA-Public Use
  Company Number: JP-JNJFOC-20160816556

PATIENT
  Age: 76 Year
  Sex: Female

DRUGS (5)
  1. OPSO [Concomitant]
     Active Substance: MORPHINE HYDROCHLORIDE
     Indication: PAIN
     Route: 048
  2. NEXIUM [Concomitant]
     Active Substance: ESOMEPRAZOLE MAGNESIUM
     Route: 048
  3. BELSOMRA [Concomitant]
     Active Substance: SUVOREXANT
     Route: 048
  4. DUROTEP MT PATCH [Suspect]
     Active Substance: FENTANYL
     Indication: CANCER PAIN
     Route: 062
     Dates: start: 20160719
  5. DECADRON [Concomitant]
     Active Substance: DEXAMETHASONE
     Route: 048

REACTIONS (3)
  - Depressed level of consciousness [Not Recovered/Not Resolved]
  - Ovarian cancer [Fatal]
  - Pyrexia [Unknown]

NARRATIVE: CASE EVENT DATE: 20160811
